FAERS Safety Report 13895137 (Version 1)
Quarter: 2017Q3

REPORT INFORMATION
  Report Type: Spontaneous
  Country: US (occurrence: US)
  Receive Date: 20170817
  Receipt Date: 20170817
  Transmission Date: 20171127
  Serious: Yes (Other)
  Sender: FDA-Public Use
  Company Number: None

PATIENT
  Age: 15 Year
  Sex: Female
  Weight: 68.85 kg

DRUGS (1)
  1. RISPERDAL [Suspect]
     Active Substance: RISPERIDONE
     Indication: AUTISM SPECTRUM DISORDER
     Dosage: ?          QUANTITY:4 TABLET(S);?
     Route: 048
     Dates: start: 20160223, end: 20161111

REACTIONS (3)
  - Weight increased [None]
  - Amenorrhoea [None]
  - Drug dependence [None]

NARRATIVE: CASE EVENT DATE: 20170316
